FAERS Safety Report 25452381 (Version 1)
Quarter: 2025Q2

REPORT INFORMATION
  Report Type: Spontaneous
  Country: NO (occurrence: NO)
  Receive Date: 20250618
  Receipt Date: 20250618
  Transmission Date: 20250716
  Serious: Yes (Other)
  Sender: TEVA
  Company Number: None

PATIENT
  Age: 37 Year
  Sex: Female

DRUGS (2)
  1. ESCITALOPRAM [Suspect]
     Active Substance: ESCITALOPRAM OXALATE
     Indication: Depression
     Dosage: 20 MG X 1, CONTINUED USE OF MEDICINAL PRODUCT, ESCITALOPRAM ACTAVIS
     Route: 048
     Dates: start: 20250120
  2. BACTRIM [Suspect]
     Active Substance: SULFAMETHOXAZOLE\TRIMETHOPRIM
     Indication: Urinary tract infection
     Dosage: 800/160 MG X 2
     Route: 048
     Dates: start: 20250220, end: 20250225

REACTIONS (6)
  - Tunnel vision [Recovered/Resolved]
  - Tremor [Recovered/Resolved]
  - Taste disorder [Recovered/Resolved]
  - Hypoaesthesia [Recovered/Resolved]
  - Parosmia [Recovered/Resolved]
  - Anxiety [Recovered/Resolved]

NARRATIVE: CASE EVENT DATE: 20250223
